FAERS Safety Report 9396533 (Version 3)
Quarter: 2013Q3

REPORT INFORMATION
  Report Type: Spontaneous
  Country: US (occurrence: US)
  Receive Date: 20130711
  Receipt Date: 20130820
  Transmission Date: 20140515
  Serious: Yes (Hospitalization)
  Sender: FDA-Public Use
  Company Number: US-BIOGENIDEC-2013BI062124

PATIENT
  Age: 71 Year
  Sex: Male

DRUGS (1)
  1. TYSABRI [Suspect]
     Indication: MULTIPLE SCLEROSIS
     Route: 042
     Dates: start: 20120814, end: 20130627

REACTIONS (6)
  - Pneumonia bacterial [Recovered/Resolved]
  - General physical health deterioration [Unknown]
  - Apparent death [Recovered/Resolved]
  - Loss of consciousness [Recovered/Resolved]
  - Malaise [Unknown]
  - Fatigue [Unknown]
